FAERS Safety Report 9825233 (Version 2)
Quarter: 2014Q3

REPORT INFORMATION
  Report Type: Spontaneous
  Country: US (occurrence: US)
  Receive Date: 20140117
  Receipt Date: 20140929
  Transmission Date: 20150326
  Serious: Yes (Hospitalization)
  Sender: FDA-Public Use
  Company Number: US-BAYER-2014-008284

PATIENT
  Age: 29 Year
  Sex: Female
  Weight: 54.42 kg

DRUGS (55)
  1. OCELLA [Suspect]
     Active Substance: DROSPIRENONE\ETHINYL ESTRADIOL
     Indication: ACNE
  2. IBUPROFEN. [Concomitant]
     Active Substance: IBUPROFEN
     Indication: PYREXIA
  3. FERROUS SULFATE [Concomitant]
     Active Substance: FERROUS SULFATE\FERROUS SULFATE, DRIED
     Indication: ANAEMIA
     Dosage: 1 TABLET DAILY
  4. HYDROCORTISONE. [Concomitant]
     Active Substance: HYDROCORTISONE
     Dosage: APPLY THREE TIMES A DAY TO ANAL AREA
  5. NITROFURANTOIN. [Concomitant]
     Active Substance: NITROFURANTOIN
     Dosage: 100 MG, ONE CAPSULE TWICE
     Route: 048
  6. CEFEPIME [Concomitant]
     Active Substance: CEFEPIME\CEFEPIME HYDROCHLORIDE
     Indication: URINARY TRACT INFECTION
  7. TUBERSOL [Concomitant]
     Active Substance: TUBERCULIN PURIFIED PROTEIN DERIVATIVE
     Dosage: PPD 5 UNITS
     Route: 023
  8. LOPERAMIDE [Concomitant]
     Active Substance: LOPERAMIDE
     Indication: DIARRHOEA
     Dosage: 2 MG, PRN
  9. ACETAMINOPHEN W/OXYCODONE [Concomitant]
     Active Substance: ACETAMINOPHEN\OXYCODONE HYDROCHLORIDE
     Indication: PAIN
     Dosage: 10-325 MG 1 TAB
  10. DEXTROSE AND SODIUM CHLORIDE INJECTION [Concomitant]
  11. GENTAMYCIN [Concomitant]
     Active Substance: GENTAMICIN
  12. MACROBID [Concomitant]
     Active Substance: NITROFURANTOIN\NITROFURANTOIN MONOHYDRATE
  13. OXYGEN. [Concomitant]
     Active Substance: OXYGEN
     Indication: HAEMOGLOBIN DECREASED
     Dosage: 2 L, UNK
  14. FERROUS SULFATE [Concomitant]
     Active Substance: FERROUS SULFATE\FERROUS SULFATE, DRIED
     Dosage: UNK
     Dates: start: 201201
  15. ACYCLOVIR [ACICLOVIR] [Concomitant]
     Active Substance: ACYCLOVIR
     Dosage: 800 MG, TID
  16. ERTAPENEM [Concomitant]
     Active Substance: ERTAPENEM
     Indication: PYREXIA
     Dosage: 1 G, UNK
     Route: 042
  17. ACETAMINOPHEN AND CODEINE [Concomitant]
     Active Substance: ACETAMINOPHEN\CODEINE PHOSPHATE
     Indication: PAIN
     Dosage: 300-30 MG1 TABLET EVERY 4 TO 6 HOUS AS NEEDED
  18. NEOSPORIN [BACITRACIN,NEOMYCIN SULFATE,POLYMYXIN B SULFATE] [Concomitant]
  19. BACTRIM [Concomitant]
     Active Substance: SULFAMETHOXAZOLE\TRIMETHOPRIM
     Dosage: UNK
     Dates: start: 201201
  20. PROZAC [Concomitant]
     Active Substance: FLUOXETINE HYDROCHLORIDE
     Dosage: UNK
     Dates: start: 201201
  21. YAZ [Suspect]
     Active Substance: DROSPIRENONE\ETHINYL ESTRADIOL
     Indication: ACNE
  22. LIDOCAINE. [Concomitant]
     Active Substance: LIDOCAINE
     Indication: ANAESTHESIA
     Dosage: 1 %, UNK
  23. ALTEPLASE [Concomitant]
     Active Substance: ALTEPLASE
     Dosage: 2 MG, UNK
  24. HYDROCODONE BIT/APAP [Concomitant]
     Active Substance: ACETAMINOPHEN\HYDROCODONE BITARTRATE
     Dosage: 10-325 MG 1 TAB EVERY 4 HOURS AS NEEDED
     Route: 048
  25. OXYGEN. [Concomitant]
     Active Substance: OXYGEN
     Indication: HAEMATOCRIT DECREASED
  26. FLEXERIL [Concomitant]
     Active Substance: CYCLOBENZAPRINE HYDROCHLORIDE
     Dosage: UNK
     Dates: start: 201201
  27. IMODIUM [Concomitant]
     Active Substance: LOPERAMIDE HYDROCHLORIDE
     Dosage: UNK
     Dates: start: 201201
  28. IBUPROFEN. [Concomitant]
     Active Substance: IBUPROFEN
     Indication: PAIN
     Dosage: 1 TABLET THREE TIMES A DAY
     Route: 048
  29. LEVOFLOXACIN [Concomitant]
     Active Substance: LEVOFLOXACIN
     Dosage: 500 MG, QD
  30. DILAUDID [Concomitant]
     Active Substance: HYDROMORPHONE HYDROCHLORIDE
  31. LOPERAMIDE [Concomitant]
     Active Substance: LOPERAMIDE
     Indication: DIARRHOEA
     Dosage: 2 MG, UNK
     Route: 048
  32. FLUOXETINE [Concomitant]
     Active Substance: FLUOXETINE\FLUOXETINE HYDROCHLORIDE
     Dosage: 40 MG, 1 CAPSULE EVERY MORNING
  33. ROCEPHIN [Concomitant]
     Active Substance: CEFTRIAXONE SODIUM
     Indication: PYELONEPHRITIS
     Dosage: 1 G, UNK
     Route: 030
  34. FLAGYL [Concomitant]
     Active Substance: METRONIDAZOLE\METRONIDAZOLE HYDROCHLORIDE
     Indication: PYREXIA
  35. XYLOCAINE [Concomitant]
     Active Substance: LIDOCAINE HYDROCHLORIDE
     Indication: BIOPSY BONE MARROW
     Dosage: 1 %, UNK
  36. ACETAMINOPHEN. [Concomitant]
     Active Substance: ACETAMINOPHEN
     Indication: HEADACHE
     Dosage: 1000 MG, AS SOON AS POSSIBLE
  37. CIPRO [Concomitant]
     Active Substance: CIPROFLOXACIN HYDROCHLORIDE
     Indication: PYREXIA
     Dosage: 500 MG, BID
     Route: 048
  38. ALBUTEROL. [Concomitant]
     Active Substance: ALBUTEROL
     Dosage: UNK
     Dates: start: 201201
  39. DOCUSATE SODIUM. [Concomitant]
     Active Substance: DOCUSATE SODIUM
     Indication: CONSTIPATION
     Dosage: 1-2 CAPSULES AS NEEDED
  40. SULFAMETHOXAZOLE-TRIMETHOPRIM (SMZ) [Concomitant]
     Active Substance: SULFAMETHOXAZOLE\TRIMETHOPRIM
     Dosage: 800-160MG 1 TABLET EVERY 12 HOURS
  41. ZITHROMAX [Concomitant]
     Active Substance: AZITHROMYCIN DIHYDRATE
  42. METRONIDAZOLE. [Concomitant]
     Active Substance: METRONIDAZOLE
     Dosage: 1 TABLET TWICE DAILY FOR 6 DAYS
     Route: 048
  43. CYCLOBENZAPRINE [Concomitant]
     Active Substance: CYCLOBENZAPRINE
     Dosage: 10 MG, TID
     Route: 048
  44. MORPHINE SULFATE. [Concomitant]
     Active Substance: MORPHINE SULFATE
     Indication: GROIN PAIN
     Dosage: 4 MG, UNK
     Route: 042
  45. METHOCARBAMOL. [Concomitant]
     Active Substance: METHOCARBAMOL
     Indication: MUSCLE SPASMS
     Dosage: 500 MG, UNK
     Route: 048
  46. OMNIPAQUE [Concomitant]
     Active Substance: IOHEXOL
     Dosage: 350 MG/ML, UNK
  47. DEMEROL [Concomitant]
     Active Substance: MEPERIDINE HYDROCHLORIDE
     Indication: GROIN PAIN
  48. YASMIN [Suspect]
     Active Substance: DROSPIRENONE\ETHINYL ESTRADIOL
     Indication: ACNE
  49. VALACICLOVIR [Concomitant]
     Active Substance: VALACYCLOVIR HYDROCHLORIDE
     Dosage: 1 TWICE DAILY
     Route: 048
  50. TERCONAZOLE. [Concomitant]
     Active Substance: TERCONAZOLE
     Dosage: 0.4 %, UNK
     Route: 067
  51. DOXYCYCLINE. [Concomitant]
     Active Substance: DOXYCYCLINE
     Indication: PYREXIA
     Dosage: 1 TABLET EVERY 12 HOURS
     Route: 048
  52. PROCTOZONE HC [Concomitant]
     Active Substance: HYDROCORTISONE
     Dosage: 2.5 %, APPLY THREE TIMES DAILY O ANAL AREA
  53. ONDANSETRON [Concomitant]
     Active Substance: ONDANSETRON
  54. INVANZ [Concomitant]
     Active Substance: ERTAPENEM SODIUM
     Dosage: 1 GM/100 ML NS DAILY
     Route: 042
  55. NAPROXEN. [Concomitant]
     Active Substance: NAPROXEN
     Dosage: 500 MG, BID FOR 5 DAYS
     Route: 048

REACTIONS (5)
  - Injury [None]
  - Atrial thrombosis [Recovered/Resolved]
  - Vena cava thrombosis [Recovered/Resolved]
  - Cholelithiasis [None]
  - Pain [None]

NARRATIVE: CASE EVENT DATE: 20111115
